FAERS Safety Report 4507237-1 (Version None)
Quarter: 2004Q4

REPORT INFORMATION
  Report Type: 
  Country: None (occurrence: None)
  Receive Date: 20041115
  Receipt Date: 20041025
  Transmission Date: 20050328
  Serious: Yes (Death)
  Sender: FDA-Public Use
  Company Number: 240077

PATIENT
  Age: 17 Year
  Sex: Male
  Weight: 72.6 kg

DRUGS (1)
  1. NOVOSEVEN [Suspect]
     Indication: INJURY

REACTIONS (1)
  - ACUTE RESPIRATORY DISTRESS SYNDROME [None]
